FAERS Safety Report 9201305 (Version 2)
Quarter: 2013Q2

REPORT INFORMATION
  Report Type: Report from Study
  Country: CA (occurrence: CA)
  Receive Date: 20130401
  Receipt Date: 20130412
  Transmission Date: 20140414
  Serious: Yes (Hospitalization)
  Sender: FDA-Public Use
  Company Number: PHHY2013CA030913

PATIENT
  Sex: Female

DRUGS (10)
  1. CLOZARIL [Suspect]
     Indication: DEMENTIA WITH LEWY BODIES
     Dosage: 200 MG, DAILY (75 EVERY DAY BEFORE NOON AND BEFORE BEDTIME AND 50 MG AT SUPPER)
     Route: 048
     Dates: start: 20110511
  2. EXELON [Concomitant]
     Dosage: 6 MG, BID
  3. SINEMET [Concomitant]
     Dosage: 1 DF, TID
  4. FLORINEF [Concomitant]
     Dosage: 0.2 MG, QD
  5. CLONAZEPAM [Concomitant]
     Dosage: 1 MG, QD
  6. ARIMIDEX [Concomitant]
     Dosage: 1 MG, DAILY
  7. MIRTAZAPINE [Concomitant]
     Dosage: 45 MG, QD
  8. SPIRIVA [Concomitant]
  9. SEREVENT [Concomitant]
  10. ADVAIR [Concomitant]

REACTIONS (2)
  - Clostridium difficile infection [Recovered/Resolved]
  - Diarrhoea haemorrhagic [Recovered/Resolved]
